FAERS Safety Report 7096885-3 (Version None)
Quarter: 2010Q4

REPORT INFORMATION
  Report Type: 
  Country: None (occurrence: None)
  Receive Date: 20101103
  Receipt Date: 20101018
  Transmission Date: 20110411
  Serious: Yes (Life-Threatening, Hospitalization, Other)
  Sender: FDA-Public Use
  Company Number: 2007001706

PATIENT
  Age: 53 Year
  Sex: Male

DRUGS (4)
  1. TARCEVA [Suspect]
     Indication: LUNG ADENOCARCINOMA RECURRENT
     Dosage: 150 MG (150 MG, QD), ORAL
     Route: 048
     Dates: start: 20070801
  2. HYDROXYZINE [Concomitant]
  3. LANSOPRAZOLE [Concomitant]
  4. LOPERAMIDE [Concomitant]

REACTIONS (26)
  - ACUTE LUNG INJURY [None]
  - ACUTE RESPIRATORY DISTRESS SYNDROME [None]
  - ACUTE RESPIRATORY FAILURE [None]
  - BLOOD PRESSURE SYSTOLIC INCREASED [None]
  - COLLAPSE OF LUNG [None]
  - CYANOSIS [None]
  - HAEMATOCRIT DECREASED [None]
  - HAEMOGLOBIN DECREASED [None]
  - HEART RATE INCREASED [None]
  - INTERSTITIAL LUNG DISEASE [None]
  - LUNG ADENOCARCINOMA [None]
  - LYMPHOCYTE COUNT INCREASED [None]
  - MALIGNANT NEOPLASM PROGRESSION [None]
  - MALIGNANT PLEURAL EFFUSION [None]
  - METAMYELOCYTE COUNT INCREASED [None]
  - MYELOCYTE COUNT INCREASED [None]
  - NEUTROPHIL COUNT DECREASED [None]
  - PAPULE [None]
  - PLATELET COUNT DECREASED [None]
  - PULMONARY TOXICITY [None]
  - RASH [None]
  - RECURRENT CANCER [None]
  - RED BLOOD CELL COUNT DECREASED [None]
  - RED CELL DISTRIBUTION WIDTH INCREASED [None]
  - TACHYPNOEA [None]
  - USE OF ACCESSORY RESPIRATORY MUSCLES [None]
